FAERS Safety Report 10136620 (Version 1)
Quarter: 2014Q2

REPORT INFORMATION
  Report Type: Spontaneous
  Country: US (occurrence: None)
  Receive Date: 20140428
  Receipt Date: 20140428
  Transmission Date: 20141212
  Serious: No
  Sender: FDA-Public Use
  Company Number: None

PATIENT
  Age: 56 Year
  Sex: Female

DRUGS (1)
  1. ORENCIA [Suspect]
     Dosage: INJECT 125 MG UNDER THE SKIN EVERY WEEK
     Dates: start: 20130206, end: 201403

REACTIONS (3)
  - Bronchitis [None]
  - Breast mass [None]
  - Drug effect decreased [None]
